FAERS Safety Report 4340999-5 (Version None)
Quarter: 2004Q2

REPORT INFORMATION
  Report Type: 
  Country: None (occurrence: None)
  Receive Date: 20040413
  Receipt Date: 20040330
  Transmission Date: 20050107
  Serious: Yes (Hospitalization)
  Sender: FDA-Public Use
  Company Number: RENA-10885

PATIENT
  Age: 70 Year
  Sex: Female
  Weight: 32 kg

DRUGS (13)
  1. RENAGEL [Suspect]
     Indication: HYPERPHOSPHATAEMIA
     Dosage: 1 G TID PO
     Route: 048
     Dates: start: 20040218
  2. RENAGEL [Suspect]
     Indication: HYPERPHOSPHATAEMIA
     Dosage: 1 G TID PO
     Route: 048
     Dates: start: 20030908, end: 20040127
  3. DIGOXIN [Concomitant]
  4. VERAPAMIL HYDROCHLORIDE [Concomitant]
  5. AMEZINIUM METILSULFATE [Concomitant]
  6. THEOPHYLLINE [Concomitant]
  7. CARBOCISTEINE [Concomitant]
  8. ERYTHROMYCIN [Concomitant]
  9. TEPRENONE [Concomitant]
  10. NITRAZEPAM [Concomitant]
  11. BROTIZOLAM [Concomitant]
  12. SENNOSIDE A-B [Concomitant]
  13. SODIUM PICOSULFATE [Concomitant]

REACTIONS (7)
  - ABDOMINAL DISTENSION [None]
  - ANAL HAEMORRHAGE [None]
  - CONSTIPATION [None]
  - ENTEROCOLITIS [None]
  - ILEUS [None]
  - INTESTINAL OBSTRUCTION [None]
  - PAIN [None]
